FAERS Safety Report 4471683-5 (Version None)
Quarter: 2004Q4

REPORT INFORMATION
  Report Type: 
  Country: None (occurrence: None)
  Receive Date: 20041012
  Receipt Date: 20041004
  Transmission Date: 20050328
  Serious: Yes (Death, Life-Threatening, Disabling)
  Sender: FDA-Public Use
  Company Number: US-MERCK-0410USA00741

PATIENT
  Sex: Female

DRUGS (2)
  1. VIOXX [Suspect]
     Indication: CANCER PAIN
     Route: 048
  2. VIOXX [Suspect]
     Indication: BREAST CANCER
     Route: 048

REACTIONS (1)
  - RENAL FAILURE [None]
